FAERS Safety Report 7153891-8 (Version None)
Quarter: 2010Q4

REPORT INFORMATION
  Report Type: 
  Country: None (occurrence: None)
  Receive Date: 20101213
  Receipt Date: 20101022
  Transmission Date: 20110411
  Serious: No
  Sender: FDA-Public Use
  Company Number: US-ABBOTT-10P-163-0680375-00

PATIENT
  Sex: Female
  Weight: 93.07 kg

DRUGS (3)
  1. MERIDIA [Suspect]
     Indication: WEIGHT DECREASED
     Dates: start: 20100101, end: 20100101
  2. LISINOPRIL [Concomitant]
     Indication: HYPERTENSION
  3. GLUCOPHAGE [Concomitant]
     Indication: GLUCOSE TOLERANCE IMPAIRED

REACTIONS (1)
  - PALPITATIONS [None]
